FAERS Safety Report 6987657-6 (Version None)
Quarter: 2010Q3

REPORT INFORMATION
  Report Type: 
  Country: None (occurrence: None)
  Receive Date: 20100916
  Receipt Date: 20100903
  Transmission Date: 20110219
  Serious: Yes (Death, Hospitalization, Disabling)
  Sender: FDA-Public Use
  Company Number: US-ELI_LILLY_AND_COMPANY-US201009002119

PATIENT
  Sex: Male

DRUGS (1)
  1. FORTEO [Suspect]
     Dosage: 20 UG, DAILY (1/D)

REACTIONS (6)
  - ABASIA [None]
  - DRUG INEFFECTIVE [None]
  - EMPHYSEMA [None]
  - GAIT DISTURBANCE [None]
  - PHYSICAL DISABILITY [None]
  - PNEUMONIA [None]
